FAERS Safety Report 12639336 (Version 1)
Quarter: 2016Q3

REPORT INFORMATION
  Report Type: Spontaneous
  Country: US (occurrence: US)
  Receive Date: 20160810
  Receipt Date: 20160810
  Transmission Date: 20161109
  Serious: No
  Sender: FDA-Public Use
  Company Number: US-SUN PHARMACEUTICAL INDUSTRIES LTD-2015US-101093

PATIENT
  Age: 49 Year
  Sex: Female

DRUGS (1)
  1. TRAMADOL. [Suspect]
     Active Substance: TRAMADOL
     Indication: PAIN
     Dosage: 1 TO 2 DF EVERY 6 HOURS
     Route: 048
     Dates: start: 20150614, end: 20150714

REACTIONS (3)
  - Drug ineffective [Unknown]
  - Nausea [Recovered/Resolved]
  - Cluster headache [Recovered/Resolved]

NARRATIVE: CASE EVENT DATE: 2015
